FAERS Safety Report 5646401-5 (Version None)
Quarter: 2008Q1

REPORT INFORMATION
  Report Type: 
  Country: None (occurrence: None)
  Receive Date: 20080227
  Receipt Date: 20080219
  Transmission Date: 20080703
  Serious: Yes (Other)
  Sender: FDA-Public Use
  Company Number: 100#03#2008-00975

PATIENT
  Age: 19 Year
  Sex: Female

DRUGS (2)
  1. SUMAMED (250 MILLIGRAM) (AZITHROMYCIN) [Suspect]
     Indication: PHARYNGITIS
     Dosage: 250 MG ONCE DAILY ORAL
     Route: 048
     Dates: start: 20071020
  2. SUMAMED (250 MILLIGRAM) (AZITHROMYCIN) [Suspect]
     Indication: TONSILLITIS
     Dosage: 250 MG ONCE DAILY ORAL
     Route: 048
     Dates: start: 20071020

REACTIONS (2)
  - EYELID OEDEMA [None]
  - LIP OEDEMA [None]
